FAERS Safety Report 4822833-X (Version None)
Quarter: 2005Q4

REPORT INFORMATION
  Report Type: 
  Country: None (occurrence: None)
  Receive Date: 20051104
  Receipt Date: 20051025
  Transmission Date: 20060501
  Serious: Yes (Other)
  Sender: FDA-Public Use
  Company Number: 2005146960

PATIENT
  Age: 38 Year
  Sex: Female
  Weight: 68.0396 kg

DRUGS (2)
  1. CELEBREX [Suspect]
     Indication: JOINT INJURY
     Dosage: (100 MG, AS NECESSARY)
  2. HERBAL PREPARATION           (HERBAL PREPARATION) [Concomitant]

REACTIONS (4)
  - ARTHRITIS [None]
  - DRUG EXPOSURE BEFORE PREGNANCY [None]
  - LIGAMENT INJURY [None]
  - PAIN [None]
